FAERS Safety Report 4851153-2 (Version None)
Quarter: 2005Q4

REPORT INFORMATION
  Report Type: 
  Country: None (occurrence: None)
  Receive Date: 20051212
  Receipt Date: 20051202
  Transmission Date: 20060501
  Serious: Yes (Death)
  Sender: FDA-Public Use
  Company Number: NL-BRISTOL-MYERS SQUIBB COMPANY-13201637

PATIENT
  Age: 38 Year
  Sex: Male

DRUGS (2)
  1. ABILIFY [Suspect]
     Indication: SCHIZOPHRENIA
     Route: 048
  2. PENFLURIDOL [Concomitant]
     Dosage: TAPERED TO 0 MG AFTER INITIATION OF ARIPIPRAZOLE

REACTIONS (1)
  - COMPLETED SUICIDE [None]
